FAERS Safety Report 20027431 (Version 1)
Quarter: 2021Q4

REPORT INFORMATION
  Report Type: Spontaneous
  Country: PK (occurrence: PK)
  Receive Date: 20211103
  Receipt Date: 20211103
  Transmission Date: 20220303
  Serious: Yes (Hospitalization, Other)
  Sender: FDA-Public Use
  Company Number: PK-NOVOPROD-861861

PATIENT
  Age: 864 Month
  Sex: Male
  Weight: 96 kg

DRUGS (1)
  1. LEVEMIR [Suspect]
     Active Substance: INSULIN DETEMIR
     Indication: Type 2 diabetes mellitus
     Dosage: 46 IU, QD
     Route: 058
     Dates: start: 20200603

REACTIONS (1)
  - Angioplasty [Recovered/Resolved]
